FAERS Safety Report 8125191-0 (Version None)
Quarter: 2012Q1

REPORT INFORMATION
  Report Type: 
  Country: None (occurrence: None)
  Receive Date: 20120209
  Receipt Date: 20120206
  Transmission Date: 20120608
  Serious: Yes (Other)
  Sender: FDA-Public Use
  Company Number: US-ALEXION PHARMACEUTICALS INC.-A201200167

PATIENT
  Sex: Male

DRUGS (9)
  1. SOLIRIS [Suspect]
     Indication: TRANSPLANT REJECTION
     Dosage: 1200 MG, UNK
     Route: 042
     Dates: start: 20100101, end: 20100101
  2. SOLIRIS [Suspect]
     Dosage: 900 MG, UNK
     Route: 042
     Dates: start: 20100101, end: 20100101
  3. PROGRAF [Concomitant]
  4. PREDNISONE [Concomitant]
  5. MYCOPHENOLATE MOFETIL (CELLCEPT) [Concomitant]
  6. SOLIRIS [Suspect]
     Dosage: 600 MG, UNK
     Route: 042
     Dates: start: 20100101, end: 20100101
  7. VALACYCLOVIR [Concomitant]
  8. PROTONIX [Concomitant]
     Indication: PROPHYLAXIS AGAINST GASTROINTESTINAL ULCER
  9. METOPROLOL [Concomitant]

REACTIONS (1)
  - HEPATITIS C [None]
